FAERS Safety Report 14875919 (Version 1)
Quarter: 2018Q2

REPORT INFORMATION
  Report Type: Report from Study
  Country: US (occurrence: US)
  Receive Date: 20180510
  Receipt Date: 20180510
  Transmission Date: 20180711
  Serious: Yes (Other)
  Sender: FDA-Public Use
  Company Number: PHEH2018US016428

PATIENT
  Sex: Female

DRUGS (2)
  1. RYDAPT [Suspect]
     Active Substance: MIDOSTAURIN
     Indication: SYSTEMIC MASTOCYTOSIS
     Route: 065
  2. IMATINIB [Suspect]
     Active Substance: IMATINIB
     Indication: SYSTEMIC MASTOCYTOSIS
     Route: 065

REACTIONS (5)
  - Leukaemia [Unknown]
  - Flushing [Recovering/Resolving]
  - Blood count abnormal [Not Recovered/Not Resolved]
  - Diarrhoea [Recovering/Resolving]
  - Malignant neoplasm progression [Unknown]

NARRATIVE: CASE EVENT DATE: 2017
